FAERS Safety Report 5706017-9 (Version None)
Quarter: 2008Q2

REPORT INFORMATION
  Report Type: 
  Country: None (occurrence: None)
  Receive Date: 20080415
  Receipt Date: 20080407
  Transmission Date: 20081010
  Serious: Yes (Other)
  Sender: FDA-Public Use
  Company Number: GB-TEVA-169709ISR

PATIENT
  Age: 71 Year
  Sex: Male
  Weight: 66 kg

DRUGS (4)
  1. AZILECT [Suspect]
     Indication: PARKINSON'S DISEASE
     Route: 048
     Dates: start: 20061001, end: 20070101
  2. ENTACAPONE [Concomitant]
     Indication: PARKINSON'S DISEASE
     Route: 048
     Dates: start: 20060101
  3. SINEMET [Concomitant]
     Indication: PARKINSON'S DISEASE
     Route: 048
     Dates: start: 20010101
  4. SINEMET [Concomitant]
     Route: 048
     Dates: start: 20040101

REACTIONS (3)
  - ACUTE MYELOMONOCYTIC LEUKAEMIA [None]
  - LEUKOPENIA [None]
  - NEUTROPENIA [None]
